FAERS Safety Report 5869955-2 (Version None)
Quarter: 2008Q3

REPORT INFORMATION
  Report Type: 
  Country: None (occurrence: None)
  Receive Date: 20080904
  Receipt Date: 20080831
  Transmission Date: 20090109
  Serious: Yes (Other)
  Sender: FDA-Public Use
  Company Number: PHHY2008BR19762

PATIENT

DRUGS (4)
  1. TEGRETOL [Suspect]
  2. PERICIAZINE [Concomitant]
  3. PAROXETINE HCL [Concomitant]
  4. BROMAZEPAM [Concomitant]

REACTIONS (2)
  - INTENTIONAL OVERDOSE [None]
  - SOPOR [None]
